FAERS Safety Report 15211949 (Version 1)
Quarter: 2018Q3

REPORT INFORMATION
  Report Type: Spontaneous
  Country: FR (occurrence: FR)
  Receive Date: 20180729
  Receipt Date: 20180729
  Transmission Date: 20181010
  Serious: Yes (Other)
  Sender: FDA-Public Use
  Company Number: FR-ASTRAZENECA-2018SE95657

PATIENT
  Sex: Male

DRUGS (2)
  1. GARDENAL [Concomitant]
     Active Substance: PHENOBARBITAL
  2. INEXIUM [Suspect]
     Active Substance: ESOMEPRAZOLE
     Indication: GASTROOESOPHAGEAL REFLUX DISEASE
     Route: 048
     Dates: start: 2014

REACTIONS (3)
  - Contusion [Unknown]
  - Off label use [Unknown]
  - Product use issue [Unknown]
